FAERS Safety Report 10080793 (Version 1)
Quarter: 2014Q2

REPORT INFORMATION
  Report Type: Spontaneous
  Country: US (occurrence: None)
  Receive Date: 20140415
  Receipt Date: 20140415
  Transmission Date: 20141212
  Serious: Yes (Hospitalization)
  Sender: FDA-Public Use
  Company Number: None

PATIENT
  Age: 30 Year
  Sex: Male
  Weight: 69.81 kg

DRUGS (1)
  1. RECLAST [Suspect]
     Indication: OSTEOPOROSIS
     Dosage: 5 MG, 1 DOSE, IV?
     Route: 042
     Dates: start: 20140328

REACTIONS (4)
  - Respiratory failure [None]
  - Pyrexia [None]
  - Lung disorder [None]
  - Condition aggravated [None]
